FAERS Safety Report 6632314-9 (Version None)
Quarter: 2010Q1

REPORT INFORMATION
  Report Type: 
  Country: None (occurrence: None)
  Receive Date: 20100312
  Receipt Date: 20100305
  Transmission Date: 20100710
  Serious: Yes (Hospitalization)
  Sender: FDA-Public Use
  Company Number: B0630348A

PATIENT
  Sex: Male

DRUGS (15)
  1. MELPHALAN HYDROCHLORIDE [Suspect]
     Indication: MULTIPLE MYELOMA
     Dosage: 7MG PER DAY
     Dates: start: 20091222, end: 20091225
  2. THALIDOMIDE [Suspect]
     Indication: MULTIPLE MYELOMA
     Dosage: 100MG PER DAY
     Route: 048
     Dates: start: 20091212, end: 20100121
  3. PREDNISONE [Suspect]
     Indication: MULTIPLE MYELOMA
     Dosage: 140MG PER DAY
     Dates: start: 20091222, end: 20091225
  4. RAMIPRIL [Concomitant]
     Indication: HYPERTENSION
     Route: 048
  5. FRUSEMIDE [Concomitant]
     Dosage: 20MG PER DAY
     Route: 048
  6. FENOFIBRATE [Concomitant]
     Dosage: 320MG TWICE PER DAY
     Route: 048
  7. FINASTERIDE [Concomitant]
     Dosage: 5MG PER DAY
     Route: 048
     Dates: start: 19890101
  8. KARDEGIC [Concomitant]
     Indication: THROMBOSIS PROPHYLAXIS
     Route: 048
  9. PROSCAR [Concomitant]
  10. TRIATEC [Concomitant]
  11. LIPANTHYL [Concomitant]
  12. MOTILIUM [Concomitant]
  13. MOVICOL [Concomitant]
  14. GAVISCON [Concomitant]
  15. LASILIX [Concomitant]

REACTIONS (6)
  - ARTHRALGIA [None]
  - BACK PAIN [None]
  - DELIRIUM [None]
  - HYPERTHERMIA [None]
  - LUNG INFECTION [None]
  - URINE ANALYSIS ABNORMAL [None]
